FAERS Safety Report 5981834-9 (Version None)
Quarter: 2008Q4

REPORT INFORMATION
  Report Type: 
  Country: None (occurrence: None)
  Receive Date: 20081205
  Receipt Date: 20081121
  Transmission Date: 20090506
  Serious: Yes (Other)
  Sender: FDA-Public Use
  Company Number: US-BAXTER-2008BH012975

PATIENT
  Sex: Female

DRUGS (2)
  1. PHENERGAN HCL [Suspect]
     Indication: MIGRAINE
     Route: 042
     Dates: start: 20061109, end: 20061109
  2. TORADOL [Concomitant]
     Indication: MIGRAINE
     Route: 065

REACTIONS (6)
  - INJECTION SITE IRRITATION [None]
  - INJECTION SITE PAIN [None]
  - OEDEMA PERIPHERAL [None]
  - PAIN IN EXTREMITY [None]
  - SKIN DISCOLOURATION [None]
  - VASCULAR INJURY [None]
